FAERS Safety Report 13943649 (Version 1)
Quarter: 2017Q3

REPORT INFORMATION
  Report Type: Spontaneous
  Country: US (occurrence: US)
  Receive Date: 20170907
  Receipt Date: 20170907
  Transmission Date: 20171128
  Serious: No
  Sender: FDA-Public Use
  Company Number: US-BIOGEN-131063

PATIENT
  Sex: Female
  Weight: 104.31 kg

DRUGS (7)
  1. THYROID [Concomitant]
     Active Substance: LEVOTHYROXINE\LIOTHYRONINE
     Indication: HYPOTHYROIDISM
     Route: 065
  2. AVONEX [Suspect]
     Active Substance: INTERFERON BETA-1A
     Route: 065
     Dates: start: 20170811
  3. AMPYRA [Concomitant]
     Active Substance: DALFAMPRIDINE
     Indication: MULTIPLE SCLEROSIS
     Route: 048
     Dates: end: 201501
  4. ELDEPRYL [Concomitant]
     Active Substance: SELEGILINE HYDROCHLORIDE
     Indication: MULTIPLE SCLEROSIS
     Route: 065
     Dates: start: 1997
  5. AVONEX [Suspect]
     Active Substance: INTERFERON BETA-1A
     Indication: MULTIPLE SCLEROSIS
     Route: 030
     Dates: start: 19970401
  6. 4-AMINOPYRIDINE [Concomitant]
     Active Substance: DALFAMPRIDINE
     Indication: FATIGUE
     Route: 065
     Dates: start: 1995
  7. CYLERT [Concomitant]
     Active Substance: PEMOLINE
     Indication: MULTIPLE SCLEROSIS
     Route: 065
     Dates: start: 1996

REACTIONS (5)
  - Raynaud^s phenomenon [Recovered/Resolved]
  - Multiple sclerosis [Not Recovered/Not Resolved]
  - Peripheral swelling [Recovered/Resolved]
  - Endometriosis [Recovered/Resolved]
  - Post procedural hypothyroidism [Unknown]

NARRATIVE: CASE EVENT DATE: 1998
